FAERS Safety Report 5653245-7 (Version None)
Quarter: 2008Q1

REPORT INFORMATION
  Report Type: 
  Country: None (occurrence: None)
  Receive Date: 20080131
  Receipt Date: 20071130
  Transmission Date: 20080703
  Serious: No
  Sender: FDA-Public Use
  Company Number: US200711002025

PATIENT
  Age: 69 Year
  Sex: Female

DRUGS (7)
  1. BYETTA [Suspect]
     Indication: TYPE 2 DIABETES MELLITUS
     Dosage: 10 UG
     Dates: start: 20060101
  2. EXENATIDE 10MCG PEN, DISPOSABLE DEVICE (EXENATIDE PEN (10MCG)) PEN,DIS [Concomitant]
  3. CYMBALTA [Concomitant]
  4. METFORMIN HCL [Concomitant]
  5. NORVASC [Concomitant]
  6. EPSOM SALT (MAGNESIUM SULFATE) [Concomitant]
  7. DIOVAN (HYDROCHLOROTHIAZIDE, VALSARTAN) [Concomitant]

REACTIONS (8)
  - ASTHENIA [None]
  - BLOOD PRESSURE ABNORMAL [None]
  - BURNING SENSATION [None]
  - CONSTIPATION [None]
  - FATIGUE [None]
  - FEELING ABNORMAL [None]
  - PALPITATIONS [None]
  - WEIGHT DECREASED [None]
